FAERS Safety Report 7360161-1 (Version None)
Quarter: 2011Q1

REPORT INFORMATION
  Report Type: 
  Country: None (occurrence: None)
  Receive Date: 20110318
  Receipt Date: 20110315
  Transmission Date: 20110831
  Serious: No
  Sender: FDA-Public Use
  Company Number: US-PFIZER INC-2011057436

PATIENT
  Sex: Female
  Weight: 63.946 kg

DRUGS (5)
  1. LIPITOR [Suspect]
     Dosage: 40 MG, 1X/DAY
     Dates: start: 20080101
  2. METOPROLOL [Concomitant]
     Indication: HYPERTENSION
     Dosage: 50 MG, DAILY
  3. BENAZEPRIL [Concomitant]
     Indication: HYPERTENSION
     Dosage: 20/12.5 MG, DAILY
  4. LIPITOR [Suspect]
     Indication: BLOOD CHOLESTEROL INCREASED
     Dosage: 10 MG, DAILY
     Route: 048
     Dates: start: 20060101
  5. LIPITOR [Suspect]
     Dosage: 20 MG, 1X/DAY

REACTIONS (6)
  - DRUG INEFFECTIVE [None]
  - ABDOMINAL PAIN UPPER [None]
  - FLATULENCE [None]
  - ERUCTATION [None]
  - DISCOMFORT [None]
  - INITIAL INSOMNIA [None]
